FAERS Safety Report 8620265-X (Version None)
Quarter: 2012Q3

REPORT INFORMATION
  Report Type: 
  Country: None (occurrence: None)
  Receive Date: 20120824
  Receipt Date: 20120820
  Transmission Date: 20120928
  Serious: Yes (Life-Threatening)
  Sender: FDA-Public Use
  Company Number: NL-CELGENEUS-114-21880-12082023

PATIENT
  Sex: Male
  Weight: 94 kg

DRUGS (4)
  1. DAUNORUBICIN HCL [Suspect]
     Route: 041
     Dates: start: 20120814, end: 20120816
  2. REVLIMID [Suspect]
     Dosage: 20 MILLIGRAM
     Route: 048
     Dates: start: 20120814, end: 20120819
  3. CYTARABINE [Suspect]
     Dosage: 430 MILLIGRAM
     Route: 041
     Dates: start: 20120814, end: 20120819
  4. FRAXIPARINE [Concomitant]
     Route: 058
     Dates: start: 20120815

REACTIONS (1)
  - SUBDURAL HAEMORRHAGE [None]
